FAERS Safety Report 8074797-6 (Version None)
Quarter: 2012Q1

REPORT INFORMATION
  Report Type: 
  Country: None (occurrence: None)
  Receive Date: 20120126
  Receipt Date: 20120120
  Transmission Date: 20120608
  Serious: Yes (Other)
  Sender: FDA-Public Use
  Company Number: US-PFIZER INC-2012017213

PATIENT
  Sex: Male

DRUGS (2)
  1. EFFEXOR XR [Suspect]
     Dosage: UNK
     Route: 065
     Dates: start: 20120101
  2. EFFEXOR XR [Suspect]
     Dosage: UNK

REACTIONS (4)
  - SUICIDAL IDEATION [None]
  - UNEVALUABLE EVENT [None]
  - OVERDOSE [None]
  - DEPRESSION [None]
